FAERS Safety Report 8163184-8 (Version None)
Quarter: 2012Q1

REPORT INFORMATION
  Report Type: 
  Country: None (occurrence: None)
  Receive Date: 20120224
  Receipt Date: 20110523
  Transmission Date: 20120608
  Serious: No
  Sender: FDA-Public Use
  Company Number: US-PFIZER INC-K201100629

PATIENT
  Age: 78 Year
  Sex: Female
  Weight: 100.68 kg

DRUGS (2)
  1. FLECTOR [Suspect]
     Indication: ARTHRITIS
     Dosage: 1 PATCH, QD
     Route: 061
     Dates: start: 20110501
  2. PRILOSEC [Concomitant]
     Dosage: UNK

REACTIONS (3)
  - WRONG TECHNIQUE IN DRUG USAGE PROCESS [None]
  - PAIN [None]
  - DIZZINESS [None]
